FAERS Safety Report 13459169 (Version 1)
Quarter: 2017Q2

REPORT INFORMATION
  Report Type: Spontaneous
  Country: US (occurrence: US)
  Receive Date: 20170419
  Receipt Date: 20170419
  Transmission Date: 20170830
  Serious: No
  Sender: FDA-Public Use
  Company Number: US-STRIDES ARCOLAB LIMITED-2016SP013885

PATIENT

DRUGS (1)
  1. VANCOMYCIN CAPSULES USP, 250 MG [Suspect]
     Active Substance: VANCOMYCIN
     Dosage: UNK
     Route: 048

REACTIONS (1)
  - Product physical issue [Unknown]
